FAERS Safety Report 5399312-7 (Version None)
Quarter: 2007Q3

REPORT INFORMATION
  Report Type: 
  Country: None (occurrence: None)
  Receive Date: 20070727
  Receipt Date: 20070606
  Transmission Date: 20080115
  Serious: Yes (Other)
  Sender: FDA-Public Use
  Company Number: US-PURDUE-USA_2007_0028020

PATIENT
  Sex: Female
  Weight: 52 kg

DRUGS (4)
  1. OXYCONTIN [Suspect]
     Indication: NECK INJURY
     Dosage: 20 MG, Q12H
     Dates: start: 20000901
  2. SERZONE [Concomitant]
  3. ZYDONE [Concomitant]
  4. SKELAXIN [Concomitant]

REACTIONS (16)
  - ATRIOVENTRICULAR BLOCK [None]
  - BLOOD PRESSURE [None]
  - COLD SWEAT [None]
  - CONSTIPATION [None]
  - CRYING [None]
  - DEPRESSION [None]
  - DIARRHOEA [None]
  - DRUG DEPENDENCE [None]
  - DRUG INEFFECTIVE [None]
  - DRUG WITHDRAWAL SYNDROME [None]
  - GAIT DISTURBANCE [None]
  - HEADACHE [None]
  - HYPERHIDROSIS [None]
  - SUICIDAL IDEATION [None]
  - TREMOR [None]
  - VOMITING [None]
